FAERS Safety Report 24582918 (Version 1)
Quarter: 2024Q4

REPORT INFORMATION
  Report Type: Spontaneous
  Country: JP (occurrence: JP)
  Receive Date: 20241106
  Receipt Date: 20241106
  Transmission Date: 20250115
  Serious: Yes (Other)
  Sender: RECORDATI
  Company Number: JP-RECORDATI RARE DISEASE INC.-2022004494

PATIENT

DRUGS (20)
  1. NEOPROFEN [Suspect]
     Active Substance: IBUPROFEN LYSINE
     Indication: Patent ductus arteriosus
     Dosage: 2.5 MILLIGRAM/KILOGRAM
     Route: 042
     Dates: start: 20220907, end: 20220907
  2. NEOPROFEN [Suspect]
     Active Substance: IBUPROFEN LYSINE
     Dosage: 2.5 MILLIGRAM/KILOGRAM
     Route: 042
     Dates: start: 20220910, end: 20220910
  3. NEOPROFEN [Suspect]
     Active Substance: IBUPROFEN LYSINE
     Dosage: 2.5 MILLIGRAM/KILOGRAM
     Route: 042
     Dates: start: 20220911, end: 20220911
  4. NEOPROFEN [Suspect]
     Active Substance: IBUPROFEN LYSINE
     Dosage: 2.5 MILLIGRAM/KILOGRAM
     Route: 042
     Dates: start: 20220914, end: 20220914
  5. GENTAMICIN [Suspect]
     Active Substance: GENTAMICIN
     Indication: Infection prophylaxis
     Dosage: UNK
     Route: 042
     Dates: start: 20220907, end: 20220908
  6. VANCOMYCIN [Suspect]
     Active Substance: VANCOMYCIN
     Indication: Omphalitis
     Dosage: UNK
     Route: 042
     Dates: start: 20220909, end: 20220920
  7. MICAFUNGIN [Suspect]
     Active Substance: MICAFUNGIN SODIUM
     Indication: Infection prophylaxis
     Dosage: UNK
     Route: 042
     Dates: start: 20220912, end: 20220915
  8. FOSFLUCONAZOLE [Suspect]
     Active Substance: FOSFLUCONAZOLE
     Indication: Infection prophylaxis
     Dosage: UNK
     Route: 042
     Dates: start: 20220907, end: 20220910
  9. FENTANYL [Concomitant]
     Active Substance: FENTANYL
     Indication: Sedation
     Dosage: UNK
     Route: 042
     Dates: start: 20220907, end: 20220912
  10. AMPICILLIN [Concomitant]
     Active Substance: AMPICILLIN
     Indication: Infection prophylaxis
     Dosage: UNK
     Route: 042
     Dates: start: 20220907, end: 20220909
  11. MEROPENEM [Concomitant]
     Active Substance: MEROPENEM
     Indication: Omphalitis
     Dosage: UNK
     Route: 042
     Dates: start: 20220909, end: 20220921
  12. HUMULIN R [Concomitant]
     Active Substance: INSULIN HUMAN
     Indication: Hyperkalaemia
     Dosage: UNK
     Route: 042
     Dates: start: 20220908, end: 20220910
  13. MENATETRENONE [Concomitant]
     Active Substance: MENATETRENONE
     Indication: Vitamin K deficiency
     Dosage: UNK
     Route: 042
     Dates: start: 20220907, end: 20221027
  14. SURFACTEN [Concomitant]
     Indication: Neonatal respiratory distress syndrome
     Dosage: UNK
     Route: 039
     Dates: start: 20220907, end: 20221012
  15. DOPAMINE HYDROCHLORIDE [Concomitant]
     Active Substance: DOPAMINE HYDROCHLORIDE
     Indication: Circulatory collapse
     Dosage: UNK
     Route: 042
     Dates: start: 20220908, end: 20220916
  16. VENOGLOBULIN IH [Concomitant]
     Active Substance: HUMAN IMMUNOGLOBULIN G
     Indication: Infection prophylaxis
     Dosage: UNK
     Route: 042
     Dates: start: 20220911, end: 20220912
  17. DOBUTREX [Concomitant]
     Active Substance: DOBUTAMINE HYDROCHLORIDE
     Indication: Circulatory collapse
     Dosage: UNK
     Route: 042
     Dates: start: 20220914, end: 20220916
  18. EPINEPHRINE [Concomitant]
     Active Substance: EPINEPHRINE
     Indication: Circulatory collapse
     Dosage: UNK
     Route: 042
     Dates: start: 20220914, end: 20220915
  19. FUROSEMIDE [Concomitant]
     Active Substance: FUROSEMIDE
     Indication: Oliguria
     Dosage: UNK
     Route: 042
     Dates: start: 20220909, end: 20220910
  20. SOLU-CORTEF [Concomitant]
     Active Substance: HYDROCORTISONE SODIUM SUCCINATE
     Indication: Neonatal respiratory distress syndrome
     Dosage: UNK
     Route: 042
     Dates: start: 20220912, end: 20220915

REACTIONS (5)
  - Omphalitis [Recovering/Resolving]
  - Blood creatinine increased [Recovering/Resolving]
  - Hyperkalaemia [Recovered/Resolved]
  - Blood pressure decreased [Recovered/Resolved]
  - Anaemia [Recovered/Resolved]

NARRATIVE: CASE EVENT DATE: 20220908
